FAERS Safety Report 9783109 (Version 4)
Quarter: 2014Q1

REPORT INFORMATION
  Report Type: Spontaneous
  Country: US (occurrence: US)
  Receive Date: 20131226
  Receipt Date: 20140227
  Transmission Date: 20141002
  Serious: No
  Sender: FDA-Public Use
  Company Number: US-JNJFOC-20131106819

PATIENT
  Age: 74 Year
  Sex: Male
  Weight: 106.6 kg

DRUGS (11)
  1. XARELTO [Suspect]
     Indication: ATRIAL FIBRILLATION
     Route: 048
     Dates: start: 20130425
  2. XARELTO [Suspect]
     Indication: CEREBROVASCULAR ACCIDENT PROPHYLAXIS
     Route: 048
     Dates: start: 20130425
  3. OXYCODONE HCL [Concomitant]
     Indication: BACK PAIN
     Dosage: USING FOR 2 OR MORE YEARS
     Route: 048
  4. SIMVASTATIN [Concomitant]
     Indication: BLOOD CHOLESTEROL
     Dosage: EVERY EVENING, USING FOR 2 OR MORE YEARS.
     Route: 048
     Dates: start: 2008
  5. AMLODIPINE [Concomitant]
     Indication: BLOOD PRESSURE
     Dosage: USING FOR 2 OR MORE YEARS
     Route: 048
     Dates: start: 2010
  6. OMEPRAZOLE [Concomitant]
     Indication: GASTROOESOPHAGEAL REFLUX DISEASE
     Dosage: USING FOR 2 OR MORE YEARS
     Route: 048
  7. LISINOPRIL [Concomitant]
     Indication: BLOOD PRESSURE
     Dosage: USING FOR 2 OR MORE YEARS
     Route: 048
     Dates: start: 2012
  8. SAW PALMETTO [Concomitant]
     Dosage: USING FOR 2 OR MORE YEARS
     Route: 065
  9. FENOFIBRATE [Concomitant]
     Indication: HIGH DENSITY LIPOPROTEIN
     Dosage: USING FOR 2 OR MORE YEARS
     Route: 048
     Dates: start: 2011
  10. ALEVE [Concomitant]
     Dosage: USING FOR 2 OR MORE YEARS
     Route: 048
  11. GABAPENTIN [Concomitant]
     Indication: PRODUCT USED FOR UNKNOWN INDICATION
     Dosage: USING FOR 2 OR MORE YEARS
     Route: 048
     Dates: start: 2010

REACTIONS (1)
  - Irritability [Not Recovered/Not Resolved]
